FAERS Safety Report 10183408 (Version 1)
Quarter: 2014Q2

REPORT INFORMATION
  Report Type: Spontaneous
  Country: US (occurrence: None)
  Receive Date: 20140416
  Receipt Date: 20140416
  Transmission Date: 20141212
  Serious: Yes (Life-Threatening, Other)
  Sender: FDA-Public Use
  Company Number: 163-POMAL-13115411

PATIENT
  Age: 53 Year
  Sex: Female
  Weight: 62.42 kg

DRUGS (12)
  1. POMALYST (POMALIDOMIDE) (4 MILLIGRAM, CAPSULES) [Suspect]
     Indication: PLASMA CELL MYELOMA RECURRENT
     Dosage: 4 MG, 21 IN 28 D, PO
     Route: 048
     Dates: start: 20131104, end: 201311
  2. KYPROLIS (CARFILZOMIB) [Suspect]
     Indication: PLASMA CELL MYELOMA
     Dosage: 5.1429 MG, DAYS 1, 2, 8, 9, 15, 16, IV
     Route: 042
     Dates: start: 20131028, end: 20131125
  3. LIPITOR (ATORVASTATIN) (UNKNOWN) [Concomitant]
  4. METFORMIN (METFORMIN) (UNKNOWN) [Concomitant]
  5. DECADRON (DEXAMETHASONE) (UNKNOWN) [Concomitant]
  6. FLUCONAZOLE (FLUCONAZOLE) (UNKNOWN) [Concomitant]
  7. GLUCOSAMINE/CHONDROTIN (GLUCOSAMINE W/CHONDROITIN SULFATE) (UNKNOWN) [Concomitant]
  8. LACTOBACILLIS (LACTOBACILLUS ACIDOPHILUS) (UNKNOWN) [Concomitant]
  9. POTASSIUM CHLORIDE (POTASSIUM CHLORIDE) (UNKNOWN) [Concomitant]
  10. VALTREX (VALACICLOVIR HYDROCHLORIDE) (UNKNOWN) [Concomitant]
  11. SENNA (SENNA) (UNKNOWN) [Concomitant]
  12. ZOMETA (ZOLEDRONIC ACID) (UNKNOWN) [Concomitant]

REACTIONS (3)
  - Neutropenia [None]
  - Platelet count decreased [None]
  - Haemoglobin decreased [None]
